FAERS Safety Report 8096326-3 (Version None)
Quarter: 2012Q1

REPORT INFORMATION
  Report Type: 
  Country: None (occurrence: None)
  Receive Date: 20120129
  Receipt Date: 20111214
  Transmission Date: 20120608
  Serious: No
  Sender: FDA-Public Use
  Company Number: US-ABBOTT-11P-163-0883097-00

PATIENT
  Sex: Male
  Weight: 99.88 kg

DRUGS (2)
  1. METHOTREXATE [Concomitant]
     Indication: RHEUMATOID ARTHRITIS
     Dates: start: 20110801
  2. HUMIRA [Suspect]
     Indication: RHEUMATOID ARTHRITIS
     Dates: start: 20111102, end: 20111116

REACTIONS (4)
  - UPPER RESPIRATORY TRACT CONGESTION [None]
  - SNEEZING [None]
  - COUGH [None]
  - NASOPHARYNGITIS [None]
